FAERS Safety Report 5173628-1 (Version None)
Quarter: 2006Q4

REPORT INFORMATION
  Report Type: 
  Country: None (occurrence: None)
  Receive Date: 20061214
  Receipt Date: 20060928
  Transmission Date: 20070319
  Serious: Yes (Other)
  Sender: FDA-Public Use
  Company Number: DE-ELI_LILLY_AND_COMPANY-DE200610000827

PATIENT
  Age: 11 Year
  Sex: Female
  Weight: 51 kg

DRUGS (2)
  1. STRATTERA [Suspect]
     Indication: ATTENTION DEFICIT/HYPERACTIVITY DISORDER
     Dosage: 18 MG, DAILY (1/D)
     Route: 048
     Dates: start: 20060301, end: 20060908
  2. AMFETAMINE SULFATE [Concomitant]
     Indication: DISTURBANCE IN ATTENTION
     Dosage: 18 MG, DAILY (1/D)
     Route: 048
     Dates: start: 20051101, end: 20060908

REACTIONS (2)
  - ATRIAL TACHYCARDIA [None]
  - BUNDLE BRANCH BLOCK [None]
